FAERS Safety Report 23920151 (Version 1)
Quarter: 2024Q2

REPORT INFORMATION
  Report Type: Spontaneous
  Country: US (occurrence: None)
  Receive Date: 20240530
  Receipt Date: 20240530
  Transmission Date: 20240716
  Serious: Yes (Hospitalization)
  Sender: FDA-Public Use
  Company Number: None

PATIENT
  Age: 67 Year
  Sex: Male
  Weight: 98.43 kg

DRUGS (1)
  1. BENZTROPINE MESYLATE [Suspect]
     Active Substance: BENZTROPINE MESYLATE
     Indication: Parkinson^s disease
     Dosage: FREQUENCY : TWICE A DAY;?
     Route: 048
     Dates: start: 20170405, end: 20230618

REACTIONS (16)
  - Constipation [None]
  - Bowel movement irregularity [None]
  - Flatulence [None]
  - Intestinal dilatation [None]
  - Atelectasis [None]
  - Pleural effusion [None]
  - Nephrolithiasis [None]
  - Bladder hypertrophy [None]
  - Complication associated with device [None]
  - Cystitis [None]
  - Decubitus ulcer [None]
  - Tuberous sclerosis complex [None]
  - Osteomyelitis [None]
  - Spinal osteoarthritis [None]
  - Infection masked [None]
  - Neoplasm [None]

NARRATIVE: CASE EVENT DATE: 20230622
